FAERS Safety Report 4281774-X (Version None)
Quarter: 2004Q1

REPORT INFORMATION
  Report Type: 
  Country: None (occurrence: None)
  Receive Date: 20040129
  Receipt Date: 20040129
  Transmission Date: 20041129
  Serious: Yes (Other)
  Sender: FDA-Public Use
  Company Number: None

PATIENT
  Age: 46 Year
  Sex: Male
  Weight: 102.0593 kg

DRUGS (3)
  1. METOPROLOL TARTRATE [Suspect]
     Indication: ANXIETY
     Dosage: 125 MG DAILY ORAL
     Route: 048
     Dates: start: 20040114, end: 20040116
  2. METOPROLOL TARTRATE [Suspect]
     Indication: DEPRESSION
     Dosage: 125 MG DAILY ORAL
     Route: 048
     Dates: start: 20040114, end: 20040116
  3. METOPROLOL TARTRATE [Suspect]
     Indication: SLEEP DISORDER
     Dosage: 125 MG DAILY ORAL
     Route: 048
     Dates: start: 20040114, end: 20040116

REACTIONS (4)
  - ANXIETY [None]
  - DEPRESSION [None]
  - DRUG EFFECT DECREASED [None]
  - SLEEP DISORDER [None]
